FAERS Safety Report 10313633 (Version 2)
Quarter: 2014Q3

REPORT INFORMATION
  Report Type: Spontaneous
  Country: US (occurrence: None)
  Receive Date: 20140716
  Receipt Date: 20140804
  Transmission Date: 20150326
  Serious: Yes (Hospitalization)
  Sender: FDA-Public Use
  Company Number: UNT-2014-003536

PATIENT
  Age: 13 Year
  Sex: Female
  Weight: 53.5 kg

DRUGS (3)
  1. REMODULIN [Suspect]
     Active Substance: TREPROSTINIL
     Indication: PULMONARY ARTERIAL HYPERTENSION
     Route: 042
     Dates: start: 20140213
  2. WARFARIN [Concomitant]
     Active Substance: WARFARIN
  3. REVATIO (SILDENAFIL CITRATE) [Concomitant]

REACTIONS (3)
  - Device related infection [None]
  - Bacteraemia [None]
  - Renal disorder [None]

NARRATIVE: CASE EVENT DATE: 20140701
